FAERS Safety Report 10092928 (Version 1)
Quarter: 2014Q2

REPORT INFORMATION
  Report Type: Spontaneous
  Country: US (occurrence: US)
  Receive Date: 20140421
  Receipt Date: 20140421
  Transmission Date: 20141212
  Serious: No
  Sender: FDA-Public Use
  Company Number: US-SA-2013SA103565

PATIENT
  Age: 73 Year
  Sex: Male
  Weight: 165 kg

DRUGS (2)
  1. ALLEGRA [Suspect]
     Indication: HYPERSENSITIVITY
     Route: 048
     Dates: start: 20131004
  2. CYTOMEL [Concomitant]
     Indication: HYPOTHYROIDISM

REACTIONS (2)
  - Condition aggravated [Recovered/Resolved]
  - Fatigue [Unknown]
